FAERS Safety Report 8757023 (Version 1)
Quarter: 2012Q4

REPORT INFORMATION
  Report Type: 
  Country: US (occurrence: US)
  Receive Date: 20120828
  Receipt Date: 20120828
  Transmission Date: 20130627
  Serious: Yes (Other)
  Sender: FDA-Public Use
  Company Number: US-TEVA-295978USA

PATIENT
  Sex: Female

DRUGS (2)
  1. METOCLOPRAMIDE [Suspect]
  2. METOCLOPRAMIDE [Suspect]

REACTIONS (14)
  - Tardive dyskinesia [Unknown]
  - Extrapyramidal disorder [Unknown]
  - Bruxism [Unknown]
  - Dyskinesia [Unknown]
  - Dyspnoea [Unknown]
  - Anxiety [Unknown]
  - Depression [Unknown]
  - Tremor [Unknown]
  - Speech disorder [Unknown]
  - Restlessness [Unknown]
  - Drooling [Unknown]
  - Excessive eye blinking [Unknown]
  - Dysphagia [Unknown]
  - Insomnia [Unknown]
